FAERS Safety Report 12340434 (Version 1)
Quarter: 2016Q2

REPORT INFORMATION
  Report Type: Spontaneous
  Country: US (occurrence: None)
  Receive Date: 20160505
  Receipt Date: 20160505
  Transmission Date: 20160815
  Serious: No
  Sender: FDA-Public Use
  Company Number: None

PATIENT
  Sex: Female

DRUGS (2)
  1. HUMALOG [Suspect]
     Active Substance: INSULIN LISPRO
  2. HUMULIN NOS [Suspect]
     Active Substance: INSULIN HUMAN

REACTIONS (6)
  - Fall [None]
  - Foot fracture [None]
  - Lower limb fracture [None]
  - Ankle fracture [None]
  - Blood glucose decreased [None]
  - Blood glucose increased [None]
